FAERS Safety Report 6083769-2 (Version None)
Quarter: 2009Q1

REPORT INFORMATION
  Report Type: 
  Country: None (occurrence: None)
  Receive Date: 20090219
  Receipt Date: 20080811
  Transmission Date: 20090719
  Serious: No
  Sender: FDA-Public Use
  Company Number: US-ASTRAZENECA-2008UW16387

PATIENT
  Sex: Female

DRUGS (1)
  1. ACCOLATE [Suspect]
     Indication: POST PROCEDURAL OEDEMA
     Route: 048
     Dates: start: 20080808

REACTIONS (3)
  - DEPRESSION [None]
  - FEELING ABNORMAL [None]
  - RESPIRATION ABNORMAL [None]
